FAERS Safety Report 18265799 (Version 1)
Quarter: 2020Q3

REPORT INFORMATION
  Report Type: Other
  Country: CA (occurrence: CA)
  Receive Date: 20200914
  Receipt Date: 20200914
  Transmission Date: 20201103
  Serious: Yes (Other)
  Sender: FDA-Public Use
  Company Number: CA-ROCHE-2032986

PATIENT
  Age: 64 Year
  Sex: Male

DRUGS (30)
  1. PREDNISOLONE ACETATE. [Concomitant]
     Active Substance: PREDNISOLONE ACETATE
  2. ZAROXOLYN [Concomitant]
     Active Substance: METOLAZONE
     Route: 048
  3. PANTOPRAZOLE [Concomitant]
     Active Substance: PANTOPRAZOLE
     Route: 048
  4. TIAZAC (CANADA) [Concomitant]
     Route: 048
  5. PREDNISONE. [Concomitant]
     Active Substance: PREDNISONE
     Dosage: VARYING DOSAGE
     Route: 048
  6. RITUXAN [Suspect]
     Active Substance: RITUXIMAB
     Indication: VASCULITIS
     Dosage: PREVIOUS RITUXIMAB INFUSION ON 06/JAN/2018
     Route: 042
     Dates: start: 201701, end: 2017
  7. QUETIAPINE. [Concomitant]
     Active Substance: QUETIAPINE
     Indication: INSOMNIA
  8. RITUXAN [Suspect]
     Active Substance: RITUXIMAB
     Route: 042
     Dates: start: 20180106, end: 20190509
  9. HUMULIN NOS [Concomitant]
     Active Substance: INSULIN HUMAN
     Indication: DIABETES MELLITUS
     Dosage: 60 IU
     Route: 058
  10. QUETIAPINE. [Concomitant]
     Active Substance: QUETIAPINE
     Indication: ANXIETY
     Route: 048
  11. RITUXAN [Suspect]
     Active Substance: RITUXIMAB
     Indication: GRANULOMATOSIS WITH POLYANGIITIS
     Dosage: FIRST RPAP INFUSION
     Route: 042
     Dates: start: 20180806
  12. RITUXAN [Suspect]
     Active Substance: RITUXIMAB
     Dosage: FIRST RPAP INFUSION
     Route: 042
     Dates: start: 20180106, end: 20190509
  13. RITUXAN [Suspect]
     Active Substance: RITUXIMAB
     Route: 042
     Dates: start: 20200908
  14. FOSRENOL [Concomitant]
     Active Substance: LANTHANUM CARBONATE
     Route: 048
  15. ACETAMINOPHEN. [Concomitant]
     Active Substance: ACETAMINOPHEN
     Route: 048
  16. ALLOPURINOL. [Concomitant]
     Active Substance: ALLOPURINOL
     Route: 048
  17. FUROSEMIDE. [Concomitant]
     Active Substance: FUROSEMIDE
     Route: 048
  18. SYNTHROID [Concomitant]
     Active Substance: LEVOTHYROXINE SODIUM
     Route: 048
  19. TYLENOL [Concomitant]
     Active Substance: ACETAMINOPHEN
     Indication: PREMEDICATION
     Route: 048
     Dates: start: 20180806
  20. SOLU?MEDROL [Concomitant]
     Active Substance: METHYLPREDNISOLONE SODIUM SUCCINATE
     Indication: PREMEDICATION
     Route: 042
     Dates: start: 20180806, end: 20180806
  21. CLONAZEPAM. [Concomitant]
     Active Substance: CLONAZEPAM
     Indication: ANXIETY
     Route: 048
  22. SOLU?MEDROL [Concomitant]
     Active Substance: METHYLPREDNISOLONE SODIUM SUCCINATE
     Route: 042
     Dates: start: 20190509
  23. ONE ALPHA [Concomitant]
     Active Substance: ALFACALCIDOL
     Route: 048
  24. HYDROMORPHONE [Concomitant]
     Active Substance: HYDROMORPHONE
     Route: 048
  25. ARANESP [Concomitant]
     Active Substance: DARBEPOETIN ALFA
     Route: 058
  26. ATORVASTATIN [Concomitant]
     Active Substance: ATORVASTATIN
     Route: 048
  27. HUMULIN NOS [Concomitant]
     Active Substance: INSULIN HUMAN
     Dosage: 20 IU, 60 UNITS THREE TIMES PER DAY WITH MEALS; 20 UNITS AT BEDTIME
     Route: 058
  28. BENADRYL [Concomitant]
     Active Substance: DIPHENHYDRAMINE HYDROCHLORIDE
     Indication: PREMEDICATION
     Route: 048
     Dates: start: 20180806, end: 20180806
  29. BISOPROLOL [Concomitant]
     Active Substance: BISOPROLOL
     Route: 048
  30. CITALOPRAM [Concomitant]
     Active Substance: CITALOPRAM HYDROBROMIDE
     Indication: ANXIETY
     Route: 048

REACTIONS (18)
  - Hypotension [Unknown]
  - Bronchitis [Recovering/Resolving]
  - Blood pressure diastolic abnormal [Unknown]
  - Muscular weakness [Unknown]
  - Hypotension [Not Recovered/Not Resolved]
  - Wheelchair user [Unknown]
  - Arrhythmia [Unknown]
  - Bradycardia [Not Recovered/Not Resolved]
  - Viral infection [Not Recovered/Not Resolved]
  - Vision blurred [Unknown]
  - Blood pressure increased [Unknown]
  - Heart rate decreased [Unknown]
  - Renal impairment [Unknown]
  - Oxygen saturation decreased [Unknown]
  - Blood pressure decreased [Unknown]
  - Stasis dermatitis [Unknown]
  - Blood pressure fluctuation [Unknown]
  - Heart rate decreased [Unknown]

NARRATIVE: CASE EVENT DATE: 2018
